FAERS Safety Report 8401799-X (Version None)
Quarter: 2012Q2

REPORT INFORMATION
  Report Type: 
  Country: None (occurrence: None)
  Receive Date: 20120529
  Receipt Date: 20090529
  Transmission Date: 20120825
  Serious: Yes (Death)
  Sender: FDA-Public Use
  Company Number: 005238

PATIENT
  Age: 79 Year
  Sex: Male

DRUGS (3)
  1. SOLDEM 3 (MAINTENANCE MEDIUM (6)) INJECTION [Concomitant]
  2. PLETAL [Suspect]
     Indication: PERIPHERAL ARTERIAL OCCLUSIVE DISEASE
     Dosage: 100 MG, BID, ORAL
     Route: 048
     Dates: start: 20080620, end: 20080725
  3. PALNAC (TAMSULOSIN HYDROCHLORIDE) [Concomitant]

REACTIONS (3)
  - HYPOPHAGIA [None]
  - POOR VENOUS ACCESS [None]
  - MALNUTRITION [None]
